FAERS Safety Report 18475015 (Version 1)
Quarter: 2020Q4

REPORT INFORMATION
  Report Type: Spontaneous
  Country: US (occurrence: US)
  Receive Date: 20201106
  Receipt Date: 20201106
  Transmission Date: 20210114
  Serious: Yes (Other)
  Sender: FDA-Public Use
  Company Number: US-SA-2020SA311133

PATIENT

DRUGS (1)
  1. TAXOTERE [Suspect]
     Active Substance: DOCETAXEL
     Dosage: UNK
     Dates: start: 201103, end: 201105

REACTIONS (2)
  - Alopecia [Unknown]
  - Emotional distress [Unknown]
